FAERS Safety Report 23694038 (Version 1)
Quarter: 2024Q2

REPORT INFORMATION
  Report Type: Spontaneous
  Country: US (occurrence: US)
  Receive Date: 20240401
  Receipt Date: 20240401
  Transmission Date: 20240716
  Serious: No
  Sender: FDA-Public Use
  Company Number: US-PERRIGO-24US001648

PATIENT
  Age: 0 Year
  Sex: Male
  Weight: 9.977 kg

DRUGS (1)
  1. MIDOL LONG LASTING RELIEF [Suspect]
     Active Substance: ACETAMINOPHEN
     Indication: Accidental exposure to product
     Dosage: 650 MG, SINGLE
     Route: 048
     Dates: start: 20240214, end: 20240214

REACTIONS (3)
  - Pyrexia [Not Recovered/Not Resolved]
  - Accidental exposure to product by child [Unknown]
  - Overdose [Unknown]

NARRATIVE: CASE EVENT DATE: 20240214
